FAERS Safety Report 21794042 (Version 1)
Quarter: 2022Q4

REPORT INFORMATION
  Report Type: Spontaneous
  Country: US (occurrence: US)
  Receive Date: 20221229
  Receipt Date: 20221229
  Transmission Date: 20230113
  Serious: Yes (Hospitalization, Other)
  Sender: FDA-Public Use
  Company Number: US-ROCHE-3246677

PATIENT
  Age: 38 Year
  Sex: Female
  Weight: 59.020 kg

DRUGS (12)
  1. CLONAZEPAM [Suspect]
     Active Substance: CLONAZEPAM
     Indication: Product used for unknown indication
  2. OCREVUS [Suspect]
     Active Substance: OCRELIZUMAB
     Indication: Secondary progressive multiple sclerosis
     Dosage: STANDARD DOSAGES ;ONGOING: YES/FEB/2018, DATE OF TREATMENT: 4/4/2022, 10/27/2021 AND 10/3/20. SIN...
     Route: 042
  3. GABAPENTIN [Concomitant]
     Active Substance: GABAPENTIN
     Indication: Neuralgia
     Dosage: DAILY DOSE: 2700 MILLIGRAM
     Route: 048
     Dates: start: 2002
  4. DIVALPROEX SODIUM [Concomitant]
     Active Substance: DIVALPROEX SODIUM
     Indication: Anxiety
     Dosage: DAILY DOSE: 500 MILLIGRAM
     Route: 048
     Dates: start: 2015
  5. DIVALPROEX SODIUM [Concomitant]
     Active Substance: DIVALPROEX SODIUM
     Indication: Depression
     Dosage: DAILY DOSE: 500 MILLIGRAM
     Route: 048
     Dates: start: 2015
  6. TIZANIDINE [Concomitant]
     Active Substance: TIZANIDINE
     Indication: Muscle spasticity
     Dosage: DAILY DOSE: 2 MILLIGRAM
     Route: 048
     Dates: start: 2015
  7. MIDODRINE [Concomitant]
     Active Substance: MIDODRINE
     Indication: Hypotension
     Dosage: DAILY DOSE: 5 MILLIGRAM
     Route: 048
     Dates: start: 2018
  8. VITAMINS [Concomitant]
     Active Substance: VITAMINS
     Dosage: STARTED 2010 2015 OR 2017 ;ONGOING: YES
     Route: 048
  9. VITAMIN D3 [Concomitant]
     Active Substance: CHOLECALCIFEROL
     Indication: Vitamin D decreased
     Dosage: DAILY DOSE: 50 MICROGRAM
     Route: 048
  10. CRANBERRY [Concomitant]
     Active Substance: CRANBERRY
     Dosage: STARTED ABOUT 4 YEARS AGO ;ONGOING: YES
     Route: 048
  11. BENADRYL ALLERGY [Concomitant]
     Active Substance: DIPHENHYDRAMINE HYDROCHLORIDE
     Route: 042
     Dates: start: 201802
  12. TYLENOL [Concomitant]
     Active Substance: ACETAMINOPHEN
     Route: 042
     Dates: start: 201802

REACTIONS (14)
  - Pain [Recovered/Resolved]
  - Fall [Unknown]
  - Burns third degree [Recovered/Resolved]
  - Intervertebral disc protrusion [Recovered/Resolved]
  - Asthenia [Recovered/Resolved]
  - Hypotension [Recovered/Resolved]
  - Bladder disorder [Unknown]
  - Abdominal discomfort [Unknown]
  - Sensory loss [Unknown]
  - Osteoporosis [Not Recovered/Not Resolved]
  - Bone disorder [Not Recovered/Not Resolved]
  - Palpitations [Not Recovered/Not Resolved]
  - Anxiety [Recovered/Resolved]
  - Hyperhidrosis [Not Recovered/Not Resolved]

NARRATIVE: CASE EVENT DATE: 20180101
